FAERS Safety Report 24736915 (Version 1)
Quarter: 2024Q4

REPORT INFORMATION
  Report Type: Other
  Country: US (occurrence: US)
  Receive Date: 20241216
  Receipt Date: 20241216
  Transmission Date: 20250115
  Serious: No
  Sender: TOLMAR
  Company Number: US-TOLMAR, INC.-24US054138

PATIENT
  Sex: Male
  Weight: 77.551 kg

DRUGS (1)
  1. ELIGARD [Suspect]
     Active Substance: LEUPROLIDE ACETATE
     Indication: Prostate cancer
     Dosage: 22.5 MILLIGRAM, Q 3 MONTH
     Route: 058

REACTIONS (2)
  - Activated partial thromboplastin time abnormal [Unknown]
  - Prostatic specific antigen increased [Unknown]
